FAERS Safety Report 19771375 (Version 2)
Quarter: 2021Q3

REPORT INFORMATION
  Report Type: Spontaneous
  Country: JP (occurrence: JP)
  Receive Date: 20210831
  Receipt Date: 20210831
  Transmission Date: 20211014
  Serious: Yes (Other)
  Sender: FDA-Public Use
  Company Number: JP-AMGEN-JPNSP2021131042

PATIENT
  Age: 68 Year
  Sex: Male

DRUGS (12)
  1. DOXORUBICIN [Concomitant]
     Active Substance: DOXORUBICIN
  2. INOTUZUMAB OZOGAMICIN [Concomitant]
     Active Substance: INOTUZUMAB OZOGAMICIN
  3. FLUDARABINE [Concomitant]
     Active Substance: FLUDARABINE PHOSPHATE
     Dosage: 150 MILLIGRAM/SQ. METER
  4. DEXAMETHASONE. [Concomitant]
     Active Substance: DEXAMETHASONE
  5. CYTARABINE. [Concomitant]
     Active Substance: CYTARABINE
  6. CYCLOPHOSPHAMIDE. [Concomitant]
     Active Substance: CYCLOPHOSPHAMIDE
  7. METHOTREXATE. [Concomitant]
     Active Substance: METHOTREXATE
  8. BLINATUMOMAB [Suspect]
     Active Substance: BLINATUMOMAB
     Indication: ACUTE LYMPHOCYTIC LEUKAEMIA RECURRENT
     Dosage: UNK
     Route: 065
  9. DASATINIB. [Concomitant]
     Active Substance: DASATINIB
  10. VINCRISTINE [Concomitant]
     Active Substance: VINCRISTINE
  11. MELPHALAN. [Concomitant]
     Active Substance: MELPHALAN
     Dosage: 100 MILLIGRAM/SQ. METER
  12. PONATINIB [Concomitant]
     Active Substance: PONATINIB

REACTIONS (1)
  - Central nervous system leukaemia [Recovered/Resolved]
